FAERS Safety Report 23229224 (Version 2)
Quarter: 2024Q1

REPORT INFORMATION
  Report Type: Spontaneous
  Country: MX (occurrence: MX)
  Receive Date: 20231127
  Receipt Date: 20240116
  Transmission Date: 20240410
  Serious: Yes (Other)
  Sender: FDA-Public Use
  Company Number: MX-NOVOPROD-1143686

PATIENT
  Age: 36 Year
  Sex: Male
  Weight: 54 kg

DRUGS (5)
  1. NOVOEIGHT [Suspect]
     Active Substance: ANTIHEMOPHILIC FACTOR, HUMAN RECOMBINANT
     Indication: Factor VIII deficiency
     Dosage: 6000 IU, QW
  2. NOVOEIGHT [Suspect]
     Active Substance: ANTIHEMOPHILIC FACTOR, HUMAN RECOMBINANT
     Dosage: 2000 IU EVERY THIRD DAY
  3. OXCARBAZEPINE [Concomitant]
     Active Substance: OXCARBAZEPINE
     Dosage: 600 MG (DOSE FREQUENCY: SPORADICALLY)
  4. RISPERIDONE [Concomitant]
     Active Substance: RISPERIDONE
     Indication: Anxiety
     Dosage: 2 MG (DOSE FREQUENCY: SPORADICALLY)
  5. LEVOTHYROXINE [Concomitant]
     Active Substance: LEVOTHYROXINE
     Indication: Thyroid disorder
     Dosage: 100 MG, QD(FAMILY MEMBER UNSURE IF PATIENT TAKES IT DAILY)

REACTIONS (3)
  - HIV infection [Unknown]
  - Hepatitis B [Unknown]
  - Hepatitis C [Unknown]

NARRATIVE: CASE EVENT DATE: 20230919
